FAERS Safety Report 10274729 (Version 1)
Quarter: 2014Q3

REPORT INFORMATION
  Report Type: Spontaneous
  Country: FR (occurrence: FR)
  Receive Date: 20140702
  Receipt Date: 20140702
  Transmission Date: 20150326
  Serious: Yes (Death, Hospitalization, Other)
  Sender: FDA-Public Use
  Company Number: FR-PFIZER INC-2014180933

PATIENT
  Age: 17 Year
  Sex: Female

DRUGS (1)
  1. MINIDRIL [Suspect]
     Active Substance: ETHINYL ESTRADIOL\LEVONORGESTREL
     Indication: CONTRACEPTION
     Dosage: 1 DF, 1X/DAY
     Route: 048
     Dates: start: 20090228, end: 20090321

REACTIONS (2)
  - Intracranial tumour haemorrhage [Fatal]
  - Cerebral haemangioma [Not Recovered/Not Resolved]

NARRATIVE: CASE EVENT DATE: 20090322
